FAERS Safety Report 5121243-8 (Version None)
Quarter: 2006Q4

REPORT INFORMATION
  Report Type: 
  Country: None (occurrence: None)
  Receive Date: 20061002
  Receipt Date: 20060918
  Transmission Date: 20070319
  Serious: Yes (Death, Other)
  Sender: FDA-Public Use
  Company Number: 2005078325

PATIENT
  Age: 79 Year
  Sex: Male
  Weight: 97.977 kg

DRUGS (9)
  1. NEURONTIN [Suspect]
     Indication: PAIN
     Dosage: (600 MG, AS NECESSARY), ORAL
     Route: 048
     Dates: start: 20030315
  2. HYDROCHLOROTHIAZDE TAB [Concomitant]
  3. FLEXERIL [Concomitant]
  4. HYDROCODONE BITARTRATE + ACETAMINOPHEN [Concomitant]
  5. BEXTRA [Concomitant]
  6. ADVIL [Concomitant]
  7. LORTAB [Concomitant]
  8. CYCLOBENZAPRINE [Concomitant]
  9. MEPERIDINE W/PROMETHAZINE (PETHIDINE, PROMETHAZINE) [Concomitant]

REACTIONS (12)
  - COMPLETED SUICIDE [None]
  - DRUG INEFFECTIVE [None]
  - GUN SHOT WOUND [None]
  - HEAD INJURY [None]
  - INTERVERTEBRAL DISC DEGENERATION [None]
  - KYPHOSIS [None]
  - PAIN IN EXTREMITY [None]
  - POST PROCEDURAL COMPLICATION [None]
  - RADICULOPATHY [None]
  - SPONDYLOLISTHESIS [None]
  - SUICIDAL BEHAVIOUR [None]
  - SUICIDAL IDEATION [None]
